FAERS Safety Report 10370956 (Version 2)
Quarter: 2017Q2

REPORT INFORMATION
  Report Type: Spontaneous
  Country: US (occurrence: US)
  Receive Date: 20140808
  Receipt Date: 20170403
  Transmission Date: 20170829
  Serious: Yes (Other)
  Sender: FDA-Public Use
  Company Number: US-PFIZER INC-2014216560

PATIENT
  Age: 66 Year
  Sex: Female
  Weight: 92.97 kg

DRUGS (3)
  1. LATANOPROST. [Suspect]
     Active Substance: LATANOPROST
     Indication: INTRAOCULAR PRESSURE INCREASED
  2. LATANOPROST. [Suspect]
     Active Substance: LATANOPROST
     Indication: GLAUCOMA
     Dosage: UNK, DAILY, INITIALLY USED IN ONE EYE AND WENT ON TO USE IT IN BOTH EYES
     Dates: start: 2009, end: 2011
  3. NIACIN. [Concomitant]
     Active Substance: NIACIN
     Dosage: UNK

REACTIONS (8)
  - Hypertension [Unknown]
  - Hypotension [Unknown]
  - Heart rate abnormal [Unknown]
  - Swelling [Unknown]
  - Dyspnoea [Unknown]
  - Pain in extremity [Unknown]
  - Palpitations [Unknown]
  - Blood pressure fluctuation [Unknown]
